FAERS Safety Report 8248215-9 (Version None)
Quarter: 2012Q1

REPORT INFORMATION
  Report Type: 
  Country: None (occurrence: None)
  Receive Date: 20120330
  Receipt Date: 20120328
  Transmission Date: 20120608
  Serious: Yes (Death, Hospitalization)
  Sender: FDA-Public Use
  Company Number: US-BRACCO-007759

PATIENT
  Age: 79 Year
  Sex: Male

DRUGS (3)
  1. BARIUM SULPHATE [Suspect]
     Indication: ABNORMAL LOSS OF WEIGHT
     Route: 048
  2. BARIUM SULPHATE [Suspect]
     Indication: DYSPHAGIA
     Route: 048
  3. BARIUM SULPHATE [Suspect]
     Indication: BARIUM SWALLOW
     Route: 048

REACTIONS (5)
  - SHOCK [None]
  - RESPIRATORY FAILURE [None]
  - CEREBRAL ISCHAEMIA [None]
  - ASPIRATION [None]
  - CARDIAC ARREST [None]
